FAERS Safety Report 8475594-X (Version None)
Quarter: 2012Q2

REPORT INFORMATION
  Report Type: 
  Country: None (occurrence: None)
  Receive Date: 20120628
  Receipt Date: 20111128
  Transmission Date: 20120825
  Serious: Yes (Hospitalization)
  Sender: FDA-Public Use
  Company Number: ES-JNJFOC-20111111738

PATIENT
  Age: 46 Year
  Sex: Female

DRUGS (6)
  1. RISPERDAL [Suspect]
     Indication: SCHIZOPHRENIA
     Route: 048
     Dates: start: 20110526
  2. AMITRIPTYLINE HCL [Interacting]
     Indication: NEUROPATHY PERIPHERAL
     Route: 048
     Dates: start: 20110919, end: 20111006
  3. DOSTINEX [Concomitant]
     Indication: PRODUCT USED FOR UNKNOWN INDICATION
     Route: 048
     Dates: start: 20110526
  4. LYRICA [Interacting]
     Indication: NEUROPATHY PERIPHERAL
     Route: 048
     Dates: start: 20110919, end: 20111003
  5. SERTRALINE HYDROCHLORIDE [Interacting]
     Indication: PRODUCT USED FOR UNKNOWN INDICATION
     Route: 048
     Dates: start: 20110526, end: 20111003
  6. AKINETON [Interacting]
     Indication: PRODUCT USED FOR UNKNOWN INDICATION
     Route: 048
     Dates: start: 20110526, end: 20111007

REACTIONS (2)
  - DRUG INTERACTION [None]
  - INAPPROPRIATE ANTIDIURETIC HORMONE SECRETION [None]
